FAERS Safety Report 15234340 (Version 1)
Quarter: 2018Q3

REPORT INFORMATION
  Report Type: Other
  Country: NL (occurrence: NL)
  Receive Date: 20180803
  Receipt Date: 20180803
  Transmission Date: 20181010
  Serious: Yes (Other)
  Sender: FDA-Public Use
  Company Number: NL-CELLTRION INC.-2018NL021564

PATIENT

DRUGS (1)
  1. REMSIMA [Suspect]
     Active Substance: INFLIXIMAB
     Indication: UVEITIS
     Dosage: 1 DF;5 MG/KG EVERY 8 WEEKS
     Route: 065
     Dates: start: 20161208, end: 20161208

REACTIONS (4)
  - Off label use [Unknown]
  - Face oedema [Recovered/Resolved]
  - Hyperleukocytosis [Recovered/Resolved]
  - Eosinophilia [Recovered/Resolved]

NARRATIVE: CASE EVENT DATE: 20171120
